FAERS Safety Report 24122225 (Version 1)
Quarter: 2024Q3

REPORT INFORMATION
  Report Type: Report from Study
  Country: CA (occurrence: CA)
  Receive Date: 20240722
  Receipt Date: 20240722
  Transmission Date: 20241017
  Serious: Yes (Hospitalization, Other)
  Sender: BOEHRINGER INGELHEIM
  Company Number: CA-BoehringerIngelheim-2024-BI-041057

PATIENT
  Age: 76 Year
  Sex: Female

DRUGS (1)
  1. OFEV [Suspect]
     Active Substance: NINTEDANIB
     Indication: Idiopathic pulmonary fibrosis
     Dates: start: 20220419

REACTIONS (3)
  - Disease complication [Recovering/Resolving]
  - Idiopathic pulmonary fibrosis [Recovering/Resolving]
  - Decreased appetite [Recovered/Resolved]
